FAERS Safety Report 22757617 (Version 2)
Quarter: 2023Q4

REPORT INFORMATION
  Report Type: Report from Study
  Country: GB (occurrence: GB)
  Receive Date: 20230727
  Receipt Date: 20231229
  Transmission Date: 20240110
  Serious: Yes (Hospitalization, Other)
  Sender: FDA-Public Use
  Company Number: GB-JNJFOC-20230155385

PATIENT
  Age: 54 Year
  Sex: Female
  Weight: 88 kg

DRUGS (43)
  1. TADALAFIL [Suspect]
     Active Substance: TADALAFIL
     Indication: Pulmonary arterial hypertension
     Dosage: 40 MILLIGRAM
     Route: 048
     Dates: start: 20171228, end: 20230429
  2. TADALAFIL [Suspect]
     Active Substance: TADALAFIL
     Dosage: 20 MILLIGRAM
     Route: 048
     Dates: start: 20171122, end: 20171127
  3. MACITENTAN [Suspect]
     Active Substance: MACITENTAN
     Indication: Pulmonary arterial hypertension
     Dosage: 10 MILLIGRAM, QD
     Route: 048
     Dates: start: 20180105
  4. SELEXIPAG [Suspect]
     Active Substance: SELEXIPAG
     Indication: Pulmonary arterial hypertension
     Dosage: 2200 MICROGRAM
     Route: 048
     Dates: start: 20230404
  5. SELEXIPAG [Suspect]
     Active Substance: SELEXIPAG
     Dosage: 2400 MICROGRAM
     Route: 048
     Dates: start: 20230412, end: 20230429
  6. SELEXIPAG [Suspect]
     Active Substance: SELEXIPAG
     Dosage: 2000 MICROGRAM
     Route: 048
     Dates: start: 20230318, end: 20230403
  7. SELEXIPAG [Suspect]
     Active Substance: SELEXIPAG
     Dosage: 1600 MICROGRAM
     Route: 048
     Dates: start: 20230308, end: 20230317
  8. SELEXIPAG [Suspect]
     Active Substance: SELEXIPAG
     Dosage: 600 MICROGRAM
     Route: 048
     Dates: start: 20221118, end: 20221208
  9. SELEXIPAG [Suspect]
     Active Substance: SELEXIPAG
     Dosage: 800 MICROGRAM
     Route: 048
     Dates: start: 20221209, end: 20221221
  10. SELEXIPAG [Suspect]
     Active Substance: SELEXIPAG
     Dosage: 1200 MICROGRAM
     Route: 048
     Dates: start: 20230228, end: 20230307
  11. SELEXIPAG [Suspect]
     Active Substance: SELEXIPAG
     Dosage: 400 MICROGRAM
     Route: 048
     Dates: start: 20230508, end: 20230508
  12. SELEXIPAG [Suspect]
     Active Substance: SELEXIPAG
     Dosage: 600 MICROGRAM
     Route: 048
     Dates: start: 20230507, end: 20230508
  13. SELEXIPAG [Suspect]
     Active Substance: SELEXIPAG
     Dosage: 1000 MICROGRAM, Q5H
     Route: 048
     Dates: start: 20230324
  14. SELEXIPAG [Suspect]
     Active Substance: SELEXIPAG
     Dosage: 800 MICROGRAM
     Route: 048
     Dates: start: 20230201, end: 20230227
  15. SELEXIPAG [Suspect]
     Active Substance: SELEXIPAG
     Dosage: 200 MICROGRAM, (1 TIME EVERY 5 DAYS)
     Route: 048
     Dates: start: 20221222, end: 20230131
  16. SELEXIPAG [Suspect]
     Active Substance: SELEXIPAG
     Dosage: 400 MICROGRAM
     Route: 048
     Dates: start: 20221107, end: 20221117
  17. SELEXIPAG [Suspect]
     Active Substance: SELEXIPAG
     Dosage: 800 MICROGRAM
     Route: 048
     Dates: start: 20230506, end: 20230507
  18. BUMETANIDE [Concomitant]
     Active Substance: BUMETANIDE
     Indication: Diuretic therapy
     Dosage: UNK
     Route: 048
     Dates: start: 20230502
  19. CYCLOSPORINE [Concomitant]
     Active Substance: CYCLOSPORINE
     Indication: Product used for unknown indication
     Dosage: UNK
     Route: 065
     Dates: start: 20230510
  20. ENOXAPARIN [Concomitant]
     Active Substance: ENOXAPARIN
     Indication: Product used for unknown indication
     Dosage: UNK
     Route: 065
     Dates: start: 20230506
  21. FUROSEMIDE [Concomitant]
     Active Substance: FUROSEMIDE
     Indication: Diuretic therapy
     Dosage: UNK
     Route: 042
     Dates: start: 20230428, end: 20230429
  22. FUROSEMIDE [Concomitant]
     Active Substance: FUROSEMIDE
     Dosage: UNK
     Route: 048
  23. HYDROXYCHLOROQUINE [Concomitant]
     Active Substance: HYDROXYCHLOROQUINE
     Indication: Connective tissue disorder
     Dosage: UNK
     Route: 048
     Dates: start: 202203
  24. LEVOTHYROXINE [Concomitant]
     Active Substance: LEVOTHYROXINE
     Indication: Hypothyroidism
     Dosage: UNK
     Route: 048
  25. MYCOPHENOLIC ACID [Concomitant]
     Active Substance: MYCOPHENOLIC ACID
     Indication: Immunosuppression
     Dosage: UNK
     Route: 048
     Dates: start: 2010, end: 20220608
  26. OMEPRAZOLE [Concomitant]
     Active Substance: OMEPRAZOLE
     Indication: Antiemetic supportive care
     Dosage: UNK
     Route: 048
  27. OXYGEN [Concomitant]
     Active Substance: OXYGEN
     Indication: Product used for unknown indication
     Dosage: UNK
     Route: 055
     Dates: start: 20230429
  28. PREGABALIN [Concomitant]
     Active Substance: PREGABALIN
     Indication: Analgesic therapy
     Dosage: UNK
     Route: 048
  29. POTASSIUM BICARBONATE\POTASSIUM CHLORIDE [Concomitant]
     Active Substance: POTASSIUM BICARBONATE\POTASSIUM CHLORIDE
     Indication: Diuretic therapy
     Dosage: UNK
     Route: 048
     Dates: start: 20230429
  30. SERTRALINE [Concomitant]
     Active Substance: SERTRALINE HYDROCHLORIDE
     Indication: Anxiety
     Dosage: UNK
     Route: 048
  31. SILDENAFIL [Concomitant]
     Active Substance: SILDENAFIL
     Indication: Raynaud^s phenomenon
     Dosage: UNK
     Route: 048
  32. SPIRONOLACTONE [Concomitant]
     Active Substance: SPIRONOLACTONE
     Indication: Diuretic therapy
     Dosage: UNK
     Route: 048
     Dates: start: 20230123, end: 202302
  33. SPIRONOLACTONE [Concomitant]
     Active Substance: SPIRONOLACTONE
     Dosage: UNK
     Route: 065
     Dates: start: 20230429
  34. TAMOXIFEN [Concomitant]
     Active Substance: TAMOXIFEN
     Indication: Antioestrogen therapy
     Dosage: UNK
     Route: 048
     Dates: start: 2010, end: 2020
  35. VELETRI [Concomitant]
     Active Substance: EPOPROSTENOL
     Indication: Product used for unknown indication
     Dosage: UNK
     Route: 065
     Dates: start: 20230508, end: 20230509
  36. VELETRI [Concomitant]
     Active Substance: EPOPROSTENOL
     Dosage: UNK
     Route: 065
     Dates: start: 20230512, end: 20230516
  37. VELETRI [Concomitant]
     Active Substance: EPOPROSTENOL
     Dosage: UNK
     Route: 065
     Dates: start: 20230521
  38. VELETRI [Concomitant]
     Active Substance: EPOPROSTENOL
     Dosage: UNK
     Route: 065
     Dates: start: 20230509, end: 20230510
  39. VELETRI [Concomitant]
     Active Substance: EPOPROSTENOL
     Dosage: UNK
     Route: 065
     Dates: start: 20230510, end: 20230512
  40. VELETRI [Concomitant]
     Active Substance: EPOPROSTENOL
     Dosage: UNK
     Route: 065
     Dates: start: 20230510
  41. VELETRI [Concomitant]
     Active Substance: EPOPROSTENOL
     Dosage: UNK
     Route: 065
     Dates: start: 20230506
  42. VELETRI [Concomitant]
     Active Substance: EPOPROSTENOL
     Dosage: UNK
     Route: 065
     Dates: start: 20230516, end: 20230517
  43. ILOPROST [Concomitant]
     Active Substance: ILOPROST
     Indication: Raynaud^s phenomenon
     Dosage: UNK
     Route: 065

REACTIONS (16)
  - Pulmonary hypertension [Unknown]
  - Cardiac failure [Recovering/Resolving]
  - Pericardial effusion [Recovering/Resolving]
  - Joint swelling [Not Recovered/Not Resolved]
  - Nocturnal dyspnoea [Unknown]
  - Abdominal distension [Not Recovered/Not Resolved]
  - Orthopnoea [Unknown]
  - Diarrhoea [Recovered/Resolved]
  - Musculoskeletal pain [Recovering/Resolving]
  - Nausea [Not Recovered/Not Resolved]
  - Headache [Recovering/Resolving]
  - Back pain [Recovered/Resolved]
  - Tachycardia [Unknown]
  - Hypotension [Recovering/Resolving]
  - Localised oedema [Unknown]
  - Oedema peripheral [Unknown]

NARRATIVE: CASE EVENT DATE: 20221117
